FAERS Safety Report 6371583-X (Version None)
Quarter: 2009Q3

REPORT INFORMATION
  Report Type: 
  Country: None (occurrence: None)
  Receive Date: 20090923
  Receipt Date: 20071012
  Transmission Date: 20100115
  Serious: Yes (Other)
  Sender: FDA-Public Use
  Company Number: US-ASTRAZENECA-2007UW18678

PATIENT
  Age: 19154 Day
  Sex: Female
  Weight: 128.8 kg

DRUGS (21)
  1. SEROQUEL [Suspect]
     Indication: BIPOLAR DISORDER
     Route: 048
     Dates: start: 20010101
  2. SEROQUEL [Suspect]
     Indication: SCHIZOPHRENIA
     Route: 048
     Dates: start: 20010101
  3. SEROQUEL [Suspect]
     Indication: DEPRESSION
     Route: 048
     Dates: start: 20010101
  4. SEROQUEL [Suspect]
     Dosage: TAKE 1 TO 4 TABS
     Route: 048
     Dates: start: 20020529
  5. SEROQUEL [Suspect]
     Dosage: TAKE 1 TO 4 TABS
     Route: 048
     Dates: start: 20020529
  6. SEROQUEL [Suspect]
     Dosage: TAKE 1 TO 4 TABS
     Route: 048
     Dates: start: 20020529
  7. SEROQUEL [Suspect]
     Dosage: TAKE 1 TO 2 TABS
     Route: 048
     Dates: start: 20020930
  8. SEROQUEL [Suspect]
     Dosage: TAKE 1 TO 2 TABS
     Route: 048
     Dates: start: 20020930
  9. SEROQUEL [Suspect]
     Dosage: TAKE 1 TO 2 TABS
     Route: 048
     Dates: start: 20020930
  10. SEROQUEL [Suspect]
     Dosage: 5 TABS PO AT HS
     Route: 048
     Dates: start: 20061107
  11. SEROQUEL [Suspect]
     Dosage: 5 TABS PO AT HS
     Route: 048
     Dates: start: 20061107
  12. SEROQUEL [Suspect]
     Dosage: 5 TABS PO AT HS
     Route: 048
     Dates: start: 20061107
  13. WELLBUTRIN SR [Concomitant]
     Dosage: TAKE 2 TABLETS EVE
     Dates: start: 20001127
  14. DEPAKOTE [Concomitant]
     Dosage: TAKE 2 TABLETS TWI
     Dates: start: 20001127
  15. AVANDIA [Concomitant]
     Dosage: TAKE 1 TABLET DAIL
     Dates: start: 20001127
  16. ZYPREXA [Concomitant]
     Dosage: TAKE 1 TABLET AT B
     Dates: start: 20001127
  17. SYNTHROID [Concomitant]
     Dosage: TAKE 1 TABLET EVER
     Dates: start: 20001227
  18. PREMARIN [Concomitant]
     Dosage: TAKE 1 TABLET EVER
     Dates: start: 20001227
  19. ZOCOR [Concomitant]
     Dosage: TAKE 1 TABLET EVER
     Dates: start: 20001227
  20. GEODON [Concomitant]
     Dosage: TAKE 2 CAPSULES TW
     Dates: start: 20020626
  21. PRAVACHOL [Concomitant]
     Dosage: TAKE 1 TABLET EVER
     Dates: start: 20020626

REACTIONS (4)
  - DIABETES MELLITUS [None]
  - DIABETES MELLITUS INADEQUATE CONTROL [None]
  - DIABETIC COMA [None]
  - HYPERGLYCAEMIA [None]
